FAERS Safety Report 8376966-4 (Version None)
Quarter: 2012Q2

REPORT INFORMATION
  Report Type: 
  Country: None (occurrence: None)
  Receive Date: 20120522
  Receipt Date: 20120515
  Transmission Date: 20120825
  Serious: Yes (Death)
  Sender: FDA-Public Use
  Company Number: US-ROCHE-1065008

PATIENT
  Sex: Female

DRUGS (1)
  1. XELODA [Suspect]
     Indication: PRODUCT USED FOR UNKNOWN INDICATION
     Dosage: 3 TABLET TWICE DAILY FOR 14 OUT OF 21 DAYS.
     Route: 048
     Dates: start: 20120112

REACTIONS (1)
  - BREAST CANCER METASTATIC [None]
